FAERS Safety Report 6184356-8 (Version None)
Quarter: 2009Q2

REPORT INFORMATION
  Report Type: 
  Country: None (occurrence: None)
  Receive Date: 20090508
  Receipt Date: 20090429
  Transmission Date: 20091009
  Serious: Yes (Death)
  Sender: FDA-Public Use
  Company Number: A0779717A

PATIENT
  Sex: Female
  Weight: 38 kg

DRUGS (4)
  1. SERETIDE [Suspect]
     Route: 055
     Dates: start: 20030101, end: 20090327
  2. SPIRIVA [Concomitant]
     Dates: start: 20030101, end: 20090327
  3. UNKNOWN [Concomitant]
  4. WARFARIN SODIUM [Concomitant]

REACTIONS (3)
  - DISSEMINATED INTRAVASCULAR COAGULATION [None]
  - EMBOLISM [None]
  - PULMONARY EMBOLISM [None]
